FAERS Safety Report 6655071-9 (Version None)
Quarter: 2010Q1

REPORT INFORMATION
  Report Type: 
  Country: None (occurrence: None)
  Receive Date: 20100329
  Receipt Date: 20100318
  Transmission Date: 20100710
  Serious: Yes (Other)
  Sender: FDA-Public Use
  Company Number: US-JNJFOC-20100306241

PATIENT
  Sex: Female
  Weight: 56.25 kg

DRUGS (11)
  1. FENTANYL-100 [Suspect]
     Indication: MULTIPLE SCLEROSIS
     Route: 062
  2. FENTANYL-100 [Suspect]
     Route: 062
  3. FENTANYL-100 [Suspect]
     Indication: NEURALGIA
     Route: 062
  4. FENTANYL-100 [Suspect]
     Route: 062
  5. FENTANYL-100 [Suspect]
     Indication: PAIN
     Route: 062
  6. FENTANYL-100 [Suspect]
     Route: 062
  7. UNSPECIFIED SANDOZ FENTANYL TRANSDERMAL SYSTEM [Suspect]
     Indication: NEURALGIA
     Route: 062
  8. UNSPECIFIED SANDOZ FENTANYL TRANSDERMAL SYSTEM [Suspect]
     Indication: PAIN
     Route: 062
  9. ROXICODONE [Concomitant]
     Indication: BREAKTHROUGH PAIN
     Dosage: 30MG TO 60 MG 1-2 EVERY 4-6 HOURS
     Route: 048
  10. XANAX [Concomitant]
     Indication: ANXIETY
     Dosage: EVERY 4-6 HOURS
     Route: 048
  11. TRAZODONE [Concomitant]
     Indication: SLEEP DISORDER
     Route: 048

REACTIONS (6)
  - BLINDNESS UNILATERAL [None]
  - CONVERSION DISORDER [None]
  - DRUG INEFFECTIVE [None]
  - PAIN [None]
  - TREATMENT NONCOMPLIANCE [None]
  - TREMOR [None]
